FAERS Safety Report 13769264 (Version 1)
Quarter: 2017Q3

REPORT INFORMATION
  Report Type: Spontaneous
  Country: US (occurrence: US)
  Receive Date: 20170719
  Receipt Date: 20170719
  Transmission Date: 20171127
  Serious: Yes (Hospitalization)
  Sender: FDA-Public Use
  Company Number: US-JNJFOC-20170711130

PATIENT
  Sex: Female
  Weight: 77.11 kg

DRUGS (7)
  1. SIMPONI ARIA [Suspect]
     Active Substance: GOLIMUMAB
     Indication: ARTHRITIS
     Route: 042
     Dates: start: 201702
  2. ASACOL [Concomitant]
     Active Substance: MESALAMINE
     Indication: GASTROINTESTINAL DISORDER
     Route: 065
  3. ASPIRIN. [Concomitant]
     Active Substance: ASPIRIN
     Indication: CEREBROVASCULAR ACCIDENT
     Route: 065
  4. METHADONE [Concomitant]
     Active Substance: METHADONE HYDROCHLORIDE
     Indication: PAIN
     Dosage: HALF TAB TWICE A DAY
     Route: 065
     Dates: start: 2017
  5. ZOLOFT [Concomitant]
     Active Substance: SERTRALINE HYDROCHLORIDE
     Indication: DEPRESSION
     Route: 065
  6. ALPRAZOLAM. [Concomitant]
     Active Substance: ALPRAZOLAM
     Indication: ANXIETY
     Dosage: EVERY 8 HOURS IF NEEDED
     Route: 065
  7. DULERA [Concomitant]
     Active Substance: FORMOTEROL FUMARATE DIHYDRATE\MOMETASONE FUROATE
     Indication: RESPIRATORY DISORDER
     Dosage: COUPLE OF PUFFS ONCE A DAY
     Route: 055

REACTIONS (6)
  - Urinary tract infection [Recovered/Resolved]
  - Arthritis [Unknown]
  - Aphonia [Not Recovered/Not Resolved]
  - Drug dose omission [Unknown]
  - Dyspnoea [Recovered/Resolved]
  - Musculoskeletal stiffness [Unknown]

NARRATIVE: CASE EVENT DATE: 2017
